FAERS Safety Report 4757568-5 (Version None)
Quarter: 2005Q3

REPORT INFORMATION
  Report Type: 
  Country: None (occurrence: None)
  Receive Date: 20050829
  Receipt Date: 20050816
  Transmission Date: 20060218
  Serious: Yes (Other)
  Sender: FDA-Public Use
  Company Number: 2005116922

PATIENT
  Sex: Female

DRUGS (5)
  1. DETROL LA [Suspect]
     Indication: HYPERTONIC BLADDER
     Dosage: UNKNOWN
     Route: 065
     Dates: start: 20050101
  2. ALL OTHER THERAPEUTIC PRODUCTS (ALL OTHER THERAPEUTIC PRODUCTS) [Suspect]
     Indication: HYPERTONIC BLADDER
     Dosage: UNKNOWN
     Route: 065
     Dates: start: 20050101, end: 20050101
  3. TROSPIUM CHLORIDE (TROSPIUM CHLORIDE) [Suspect]
     Indication: HYPERTONIC BLADDER
     Dosage: UNKNOWN
     Route: 065
     Dates: start: 20050101, end: 20050816
  4. TYLENOL [Concomitant]
  5. THYROID TAB [Concomitant]

REACTIONS (12)
  - ABDOMINAL PAIN [None]
  - CONSTIPATION [None]
  - DIARRHOEA [None]
  - DRUG EFFECT DECREASED [None]
  - DRY MOUTH [None]
  - DYSACUSIS [None]
  - FREQUENT BOWEL MOVEMENTS [None]
  - GLAUCOMA [None]
  - INSOMNIA [None]
  - MUSCLE SPASMS [None]
  - NEUROFIBROMATOSIS [None]
  - RECTAL NEOPLASM [None]
